FAERS Safety Report 12818680 (Version 1)
Quarter: 2016Q4

REPORT INFORMATION
  Report Type: Spontaneous
  Country: US (occurrence: US)
  Receive Date: 20161005
  Receipt Date: 20161005
  Transmission Date: 20170207
  Serious: Yes (Hospitalization)
  Sender: FDA-Public Use
  Company Number: None

PATIENT
  Age: 81 Year
  Sex: Male
  Weight: 80 kg

DRUGS (1)
  1. ACYCLOVIR. [Suspect]
     Active Substance: ACYCLOVIR
     Indication: ENCEPHALITIS VIRAL
     Route: 042
     Dates: start: 20160911, end: 20160925

REACTIONS (2)
  - Blood creatinine increased [None]
  - Mental status changes [None]

NARRATIVE: CASE EVENT DATE: 20160925
